FAERS Safety Report 10140613 (Version 1)
Quarter: 2014Q2

REPORT INFORMATION
  Report Type: Spontaneous
  Country: CA (occurrence: CA)
  Receive Date: 20140429
  Receipt Date: 20140429
  Transmission Date: 20141212
  Serious: Yes (Life-Threatening, Hospitalization, Other)
  Sender: FDA-Public Use
  Company Number: CA-VERTEX PHARMACEUTICALS INC-2014-002053

PATIENT
  Age: 61 Year
  Sex: Female
  Weight: 59 kg

DRUGS (5)
  1. INCIVEK [Suspect]
     Indication: HEPATITIS C
     Dosage: UNK
     Route: 065
  2. PEGASYS RBV [Suspect]
     Indication: HEPATITIS C
     Dosage: 1 EVERY 1 DAY
     Route: 048
  3. PEGASYS RBV [Suspect]
     Indication: HEPATITIS C
     Dosage: 1 EVERY 1 WEEK
     Route: 030
  4. LAMOTRIGINE [Concomitant]
  5. RABEPRAZOLE [Concomitant]

REACTIONS (12)
  - Alanine aminotransferase decreased [Recovered/Resolved]
  - Aspartate aminotransferase increased [Recovered/Resolved]
  - Gamma-glutamyltransferase increased [Recovered/Resolved]
  - International normalised ratio increased [Recovered/Resolved]
  - Lipase increased [Recovered/Resolved]
  - Pancreatitis acute [Recovered/Resolved]
  - Asthenia [Recovered/Resolved]
  - White blood cell count decreased [Recovered/Resolved]
  - Renal failure acute [Recovered/Resolved]
  - Anaemia [Recovered/Resolved]
  - Jaundice [Recovered/Resolved]
  - Platelet count decreased [Recovered/Resolved]
